FAERS Safety Report 14183103 (Version 1)
Quarter: 2017Q4

REPORT INFORMATION
  Report Type: Report from Study
  Country: GB (occurrence: GB)
  Receive Date: 20171113
  Receipt Date: 20171113
  Transmission Date: 20180321
  Serious: Yes (Other)
  Sender: FDA-Public Use
  Company Number: GB-JNJFOC-20171107664

PATIENT
  Age: 37 Year
  Sex: Female
  Weight: 93 kg

DRUGS (1)
  1. STELARA [Suspect]
     Active Substance: USTEKINUMAB
     Indication: PSORIASIS
     Route: 058
     Dates: start: 20160418, end: 20170515

REACTIONS (1)
  - Cervical dysplasia [Recovered/Resolved with Sequelae]

NARRATIVE: CASE EVENT DATE: 20170605
